FAERS Safety Report 14999721 (Version 1)
Quarter: 2018Q2

REPORT INFORMATION
  Report Type: Report from Study
  Country: AU (occurrence: AU)
  Receive Date: 20180612
  Receipt Date: 20180612
  Transmission Date: 20180711
  Serious: Yes (Other)
  Sender: FDA-Public Use
  Company Number: AU-ROCHE-2134895

PATIENT
  Age: 77 Year
  Sex: Male
  Weight: 64.4 kg

DRUGS (11)
  1. OBINUTUZUMAB. [Suspect]
     Active Substance: OBINUTUZUMAB
     Dosage: OBINUTUZUMAB 1000 MG IV INFUSION EVERY 2 MONTHS DURING MAINTENANCE PERIOD?DATE OF MOST RECENT DOSE:
     Route: 042
  2. BENDAMUSTINE [Suspect]
     Active Substance: BENDAMUSTINE
     Indication: NON-HODGKIN^S LYMPHOMA UNSPECIFIED HISTOLOGY INDOLENT
     Dosage: 90 MG/M^2 IV INFUSION WOULD BE ADMINISTERED ON DAYS 1 AND 2 OF EACH CYCLE DURING INDUCTION PERIOD (2
     Route: 042
     Dates: start: 20140107
  3. SPIRIVA [Concomitant]
     Active Substance: TIOTROPIUM BROMIDE MONOHYDRATE
     Indication: CHRONIC OBSTRUCTIVE PULMONARY DISEASE
  4. CORTIC [Concomitant]
     Indication: ECZEMA
     Dosage: CORTIC DS
     Route: 065
     Dates: start: 20140406
  5. COLOXYL WITH SENNA [Concomitant]
     Active Substance: DOCUSATE\SENNOSIDES
     Indication: CONSTIPATION
     Route: 065
     Dates: start: 20140112
  6. GRANISETRON [Concomitant]
     Active Substance: GRANISETRON
     Route: 065
     Dates: start: 20140107
  7. OBINUTUZUMAB. [Suspect]
     Active Substance: OBINUTUZUMAB
     Indication: NON-HODGKIN^S LYMPHOMA UNSPECIFIED HISTOLOGY INDOLENT
     Dosage: ON DAY 1, 8, AND 15 OF CYCLE 1 AND THEN ON DAY 1 OF EACH SUBSEQUENT CYCLE DURING INDUCTION PERIOD (2
     Route: 042
     Dates: start: 20140107
  8. ADVANTAN [Concomitant]
     Active Substance: METHYLPREDNISOLONE ACEPONATE
     Indication: ECZEMA
     Route: 065
     Dates: start: 20140306
  9. ALBALON-A [Concomitant]
     Indication: FOREIGN BODY SENSATION IN EYES
     Route: 065
     Dates: start: 20140212
  10. HIRUDOID CREAM [Concomitant]
     Indication: PROPHYLAXIS
     Route: 065
     Dates: start: 20140107
  11. DIPROSONE [Concomitant]
     Active Substance: BETAMETHASONE DIPROPIONATE
     Indication: ECZEMA
     Route: 065
     Dates: start: 20140306

REACTIONS (3)
  - Basal cell carcinoma [Recovered/Resolved]
  - Squamous cell carcinoma [Recovered/Resolved]
  - Skin neoplasm excision [Recovered/Resolved]

NARRATIVE: CASE EVENT DATE: 20180307
